FAERS Safety Report 4689470-1 (Version None)
Quarter: 2005Q2

REPORT INFORMATION
  Report Type: 
  Country: None (occurrence: None)
  Receive Date: 20050311
  Receipt Date: 20050311
  Transmission Date: 20051028
  Serious: No
  Sender: FDA-Public Use
  Company Number: None

PATIENT
  Sex: Female

DRUGS (2)
  1. BUPROPION HCL [Suspect]
     Indication: AFFECTIVE DISORDER
     Dosage: 100 MG PO BID
     Route: 048
     Dates: start: 20031201
  2. BUPROPION HCL [Suspect]
     Indication: BIPOLAR DISORDER
     Dosage: 100 MG PO BID
     Route: 048
     Dates: start: 20031201

REACTIONS (1)
  - THERAPEUTIC PRODUCT INEFFECTIVE [None]
